FAERS Safety Report 25252673 (Version 4)
Quarter: 2025Q2

REPORT INFORMATION
  Report Type: Spontaneous
  Country: US (occurrence: US)
  Receive Date: 20250429
  Receipt Date: 20250630
  Transmission Date: 20250717
  Serious: No
  Sender: TRAVERE THERAPEUTICS
  Company Number: US-TRAVERE-2025TVT00446

PATIENT
  Age: 70 Year
  Sex: Female

DRUGS (1)
  1. FILSPARI [Suspect]
     Active Substance: SPARSENTAN
     Indication: IgA nephropathy
     Route: 048
     Dates: start: 20250329

REACTIONS (5)
  - Vision blurred [None]
  - Dry mouth [None]
  - Musculoskeletal discomfort [Recovered/Resolved]
  - Abdominal pain [Recovered/Resolved]
  - Dehydration [None]

NARRATIVE: CASE EVENT DATE: 20250501
